FAERS Safety Report 4741088-8 (Version None)
Quarter: 2005Q3

REPORT INFORMATION
  Report Type: 
  Country: None (occurrence: None)
  Receive Date: 20050808
  Receipt Date: 20050726
  Transmission Date: 20060218
  Serious: Yes (Other)
  Sender: FDA-Public Use
  Company Number: USA0507103866

PATIENT
  Age: 75 Year
  Sex: Female
  Weight: 91 kg

DRUGS (2)
  1. HUMULIN R [Suspect]
     Indication: DIABETES MELLITUS
     Dosage: 10 U
  2. HUMULIN N [Suspect]
     Indication: DIABETES MELLITUS
     Dosage: 20 U/1 DAY

REACTIONS (10)
  - ARTHRITIS [None]
  - BACK PAIN [None]
  - BLOOD GLUCOSE FLUCTUATION [None]
  - BODY HEIGHT DECREASED [None]
  - CATARACT [None]
  - DEATH OF CHILD [None]
  - DEPRESSION [None]
  - FIBULA FRACTURE [None]
  - POOR QUALITY DRUG ADMINISTERED [None]
  - TIBIA FRACTURE [None]
